FAERS Safety Report 6978766-6 (Version None)
Quarter: 2010Q3

REPORT INFORMATION
  Report Type: 
  Country: None (occurrence: None)
  Receive Date: 20100913
  Receipt Date: 20100906
  Transmission Date: 20110219
  Serious: Yes (Life-Threatening, Hospitalization)
  Sender: FDA-Public Use
  Company Number: DE-ROCHE-726034

PATIENT
  Age: 79 Year
  Sex: Female
  Weight: 64 kg

DRUGS (9)
  1. ROCEPHIN [Suspect]
     Indication: PRODUCT USED FOR UNKNOWN INDICATION
     Route: 042
     Dates: start: 20100413, end: 20100420
  2. DIOVAN [Suspect]
     Indication: PRODUCT USED FOR UNKNOWN INDICATION
     Dosage: FILM-COATED TABLET
     Route: 048
     Dates: start: 20100413, end: 20100414
  3. DIOVAN HCT [Suspect]
     Indication: PRODUCT USED FOR UNKNOWN INDICATION
     Dosage: STRENGTH REPORTED AS 160/12.5 MG, BREAK FROM 11 APRIL 2010 TO 13 APRIL 2010
     Route: 048
     Dates: start: 20100316, end: 20100410
  4. DIOVAN HCT [Suspect]
     Route: 048
     Dates: start: 20100414, end: 20100420
  5. XENETIX [Suspect]
     Dosage: DRUG REPORTED AS XENETIX 300
     Route: 042
     Dates: start: 20100429, end: 20100429
  6. MEROPENEM [Suspect]
     Indication: PRODUCT USED FOR UNKNOWN INDICATION
     Route: 042
     Dates: start: 20100420, end: 20100423
  7. MEROPENEM [Suspect]
     Route: 042
     Dates: start: 20100429, end: 20100501
  8. MEROPENEM [Suspect]
     Route: 042
     Dates: start: 20100502, end: 20100502
  9. KLACID [Suspect]
     Indication: PRODUCT USED FOR UNKNOWN INDICATION
     Dosage: DRUG REPORTED AS KLACID FORTE, FILM COATED TABLET
     Route: 048
     Dates: start: 20100414, end: 20100420

REACTIONS (1)
  - RENAL FAILURE ACUTE [None]
